FAERS Safety Report 9335240 (Version 1)
Quarter: 2013Q2

REPORT INFORMATION
  Report Type: Report from Study
  Country: DE (occurrence: DE)
  Receive Date: 20130606
  Receipt Date: 20130606
  Transmission Date: 20140414
  Serious: Yes (Hospitalization)
  Sender: FDA-Public Use
  Company Number: DE-GLAXOSMITHKLINE-Z0019515A

PATIENT
  Age: 62 Year
  Sex: Female
  Weight: 81.1 kg

DRUGS (3)
  1. TRAMETINIB [Suspect]
     Indication: MALIGNANT MELANOMA
     Dosage: 2MG PER DAY
     Route: 048
     Dates: start: 20130314
  2. DABRAFENIB [Suspect]
     Indication: MALIGNANT MELANOMA
     Dosage: 150MG TWICE PER DAY
     Route: 048
     Dates: start: 20130314
  3. FRAXIPARIN [Concomitant]
     Indication: PROPHYLAXIS
     Dosage: .4ML PER DAY
     Route: 058
     Dates: start: 20130419, end: 20130422

REACTIONS (1)
  - Pyrexia [Recovered/Resolved]
